FAERS Safety Report 7703048-4 (Version None)
Quarter: 2011Q3

REPORT INFORMATION
  Report Type: 
  Country: None (occurrence: None)
  Receive Date: 20110823
  Receipt Date: 20110809
  Transmission Date: 20111222
  Serious: Yes (Hospitalization)
  Sender: FDA-Public Use
  Company Number: US-ENDO PHARMACEUTICALS INC.-ENDC20110218

PATIENT
  Sex: Female

DRUGS (6)
  1. OXYCODONE AND ACETAMINOPHEN [Suspect]
     Dosage: 7.5/325 MG
     Route: 048
  2. OXYCONTIN [Concomitant]
     Indication: BREAKTHROUGH PAIN
     Dosage: UNK
     Route: 048
  3. OXYCODONE AND ACETAMINOPHEN [Suspect]
     Indication: PAIN
     Dosage: 10/325 MG
     Route: 048
  4. CELEBREX [Concomitant]
     Route: 048
  5. OXYCODONE AND ACETAMINOPHEN [Suspect]
     Dosage: 5/325 MG
     Route: 048
  6. CELEBREX [Concomitant]
     Route: 048

REACTIONS (4)
  - DRUG INEFFECTIVE [None]
  - FATIGUE [None]
  - PNEUMONIA [None]
  - ALOPECIA [None]
